FAERS Safety Report 9065174 (Version 1)
Quarter: 2013Q1

REPORT INFORMATION
  Report Type: Report from Study
  Country: US (occurrence: US)
  Receive Date: 20130130
  Receipt Date: 20130130
  Transmission Date: 20140127
  Serious: No
  Sender: FDA-Public Use
  Company Number: US-ABBOTT-12P-163-0969527-00

PATIENT
  Age: 74 Year
  Sex: Female

DRUGS (13)
  1. HUMIRA 40 MG/0.8 ML PEN [Suspect]
     Indication: CROHN^S DISEASE
     Dates: start: 201202
  2. NORVASC [Concomitant]
     Indication: BLOOD PRESSURE
     Dosage: 10MG DAILY
  3. DIOVAN [Concomitant]
     Indication: BLOOD PRESSURE
     Dosage: 360MG DAILY
  4. ASPIRIN [Concomitant]
     Indication: PROPHYLAXIS
     Dosage: 81MG DAILY
  5. POTASSIUM [Concomitant]
     Indication: CROHN^S DISEASE
     Dosage: 20MEQ DAILY
  6. IRON + VITAMIN C [Concomitant]
     Indication: CROHN^S DISEASE
     Dosage: DAILY
  7. CALCIUM [Concomitant]
     Indication: OSTEOPOROSIS
     Dosage: DAILY
  8. FOSAMAX [Concomitant]
     Indication: OSTEOPOROSIS
  9. CHOLESTYRAMINE [Concomitant]
     Indication: DIARRHOEA
     Dosage: DAILY
  10. STOOL SOFTENER [Concomitant]
     Indication: PRODUCT USED FOR UNKNOWN INDICATION
     Dosage: DAILY
  11. XOPENEX [Concomitant]
     Indication: ASTHMA
     Dosage: DAILY
  12. ADVAIR [Concomitant]
     Indication: ASTHMA
     Dosage: DAILY
  13. PRILOSEC [Concomitant]
     Indication: DYSPEPSIA
     Dosage: DAILY

REACTIONS (2)
  - Wrong technique in drug usage process [Recovered/Resolved]
  - Drug administered at inappropriate site [Recovered/Resolved]
